FAERS Safety Report 6348627-4 (Version None)
Quarter: 2009Q3

REPORT INFORMATION
  Report Type: 
  Country: None (occurrence: None)
  Receive Date: 20090911
  Receipt Date: 20090910
  Transmission Date: 20100115
  Serious: Yes (Other)
  Sender: FDA-Public Use
  Company Number: ES-PFIZER INC-2009247811

PATIENT
  Age: 68 Year

DRUGS (4)
  1. ZITHROMAX [Suspect]
     Dosage: 500 MG, 1X/DAY
     Route: 048
     Dates: start: 20081019, end: 20081021
  2. EMCONCOR COR [Concomitant]
     Dosage: 2.5 MG, 1X/DAY
     Route: 048
     Dates: start: 20080501
  3. SINTROM [Concomitant]
     Dosage: UNK MG, UNK
     Route: 048
     Dates: start: 20080101
  4. AMIODARONE HCL [Concomitant]
     Dosage: 200 MG, 1X/DAY
     Route: 048
     Dates: start: 20080401

REACTIONS (3)
  - BRADYCARDIA [None]
  - DEPRESSED MOOD [None]
  - HYPOTENSION [None]
